FAERS Safety Report 15258700 (Version 1)
Quarter: 2018Q3

REPORT INFORMATION
  Report Type: Spontaneous
  Country: GB (occurrence: GB)
  Receive Date: 20180809
  Receipt Date: 20180809
  Transmission Date: 20181010
  Serious: Yes (Other)
  Sender: FDA-Public Use
  Company Number: GB-TEVA-2018-GB-936341

PATIENT
  Age: 69 Year
  Sex: Female

DRUGS (18)
  1. MACROGOL [Concomitant]
     Active Substance: POLYETHYLENE GLYCOLS
     Route: 065
  2. ADCAL D3 [Concomitant]
     Active Substance: CALCIUM CARBONATE\CHOLECALCIFEROL
     Route: 065
  3. PARACETAMOL ? TABLET [Concomitant]
     Active Substance: ACETAMINOPHEN
     Route: 065
  4. CABERGOLINE. [Suspect]
     Active Substance: CABERGOLINE
     Route: 065
  5. SEPTRIN [Suspect]
     Active Substance: SULFAMETHOXAZOLE\TRIMETHOPRIM
     Route: 065
  6. LEVODOPA [Suspect]
     Active Substance: LEVODOPA
     Route: 065
  7. CARBIDOPA. [Suspect]
     Active Substance: CARBIDOPA
     Route: 065
  8. STALEVO [Suspect]
     Active Substance: CARBIDOPA\ENTACAPONE\LEVODOPA
     Route: 065
  9. TRIMETHOPRIM. [Suspect]
     Active Substance: TRIMETHOPRIM
     Route: 065
  10. CO?BENELDOPA CAPSULES 50 MG/12.5 MG [Concomitant]
     Route: 065
  11. CO?BENELDOPA CAPSULES [Concomitant]
     Route: 065
  12. CO?BENELDOPA CAPSULES [Concomitant]
     Route: 065
  13. CITALOPRAM [Suspect]
     Active Substance: CITALOPRAM HYDROBROMIDE
     Route: 065
  14. ESCITALOPRAM [Suspect]
     Active Substance: ESCITALOPRAM OXALATE
     Route: 065
  15. RIVASTIGMINE 4.6MG PATCH ? TRANSDERMAL PATCH [Concomitant]
  16. QUETIAPINE 25 MG [Concomitant]
     Active Substance: QUETIAPINE
     Route: 065
  17. DULOXETINE 90MG CAPSULE [Concomitant]
     Route: 065
  18. ENTACAPONE. [Suspect]
     Active Substance: ENTACAPONE
     Route: 065

REACTIONS (1)
  - Stevens-Johnson syndrome [Unknown]
